FAERS Safety Report 16245217 (Version 2)
Quarter: 2019Q2

REPORT INFORMATION
  Report Type: Spontaneous
  Country: US (occurrence: US)
  Receive Date: 20190426
  Receipt Date: 20190621
  Transmission Date: 20190711
  Serious: No
  Sender: FDA-Public Use
  Company Number: US-PFIZER INC-2019172965

PATIENT
  Sex: Female

DRUGS (1)
  1. LYRICA [Suspect]
     Active Substance: PREGABALIN
     Dosage: UNK
     Dates: start: 20190313

REACTIONS (3)
  - Pain [Unknown]
  - Peripheral swelling [Unknown]
  - Physical disability [Unknown]

NARRATIVE: CASE EVENT DATE: 2019
